FAERS Safety Report 7608405-2 (Version None)
Quarter: 2011Q3

REPORT INFORMATION
  Report Type: 
  Country: None (occurrence: None)
  Receive Date: 20110713
  Receipt Date: 20110713
  Transmission Date: 20111222
  Serious: Yes (Other)
  Sender: FDA-Public Use
  Company Number: None

PATIENT
  Age: 78 Year
  Sex: Female

DRUGS (1)
  1. COMBIGAN [Suspect]
     Indication: GLAUCOMA
     Dosage: ONE DROP TWICE DAILY IN EACH EYE, ONE DROP TWICE DAILY IN BOTH EYES
     Dates: start: 20100401, end: 20110601

REACTIONS (23)
  - EYE PRURITUS [None]
  - INSOMNIA [None]
  - ABDOMINAL DISCOMFORT [None]
  - AMNESIA [None]
  - TONGUE ULCERATION [None]
  - DRY MOUTH [None]
  - PRURITUS [None]
  - TINNITUS [None]
  - JOINT SWELLING [None]
  - FOLLICULITIS [None]
  - ASTHENIA [None]
  - BLEPHARITIS [None]
  - DYSGEUSIA [None]
  - ABDOMINAL PAIN [None]
  - ALOPECIA [None]
  - HEADACHE [None]
  - CONFUSIONAL STATE [None]
  - NASOPHARYNGITIS [None]
  - VERTIGO [None]
  - CONJUNCTIVITIS [None]
  - ANXIETY [None]
  - VULVOVAGINAL MYCOTIC INFECTION [None]
  - DISTURBANCE IN ATTENTION [None]
